FAERS Safety Report 6544869-3 (Version None)
Quarter: 2010Q1

REPORT INFORMATION
  Report Type: 
  Country: None (occurrence: None)
  Receive Date: 20100121
  Receipt Date: 20100111
  Transmission Date: 20100710
  Serious: Yes (Hospitalization)
  Sender: FDA-Public Use
  Company Number: US-ELI_LILLY_AND_COMPANY-US200912005057

PATIENT
  Sex: Female

DRUGS (7)
  1. FORTEO [Suspect]
     Indication: OSTEOPOROSIS
     Dosage: 20 UG, DAILY (1/D)
     Dates: start: 20090101, end: 20100104
  2. AMITIZA [Concomitant]
     Indication: DIVERTICULITIS
     Dates: end: 20100104
  3. SYNTHROID [Concomitant]
     Dates: end: 20100104
  4. ASPIRIN [Concomitant]
     Dates: end: 20100104
  5. LOVASTATIN [Concomitant]
     Dates: end: 20100104
  6. VITAMINS NOS [Concomitant]
     Dates: end: 20100104
  7. CALCIUM                                 /N/A/ [Concomitant]
     Dates: end: 20100104

REACTIONS (1)
  - DIVERTICULITIS [None]
